FAERS Safety Report 9028643 (Version 1)
Quarter: 2013Q1

REPORT INFORMATION
  Report Type: Spontaneous
  Country: MX (occurrence: MX)
  Receive Date: 20130124
  Receipt Date: 20130124
  Transmission Date: 20140127
  Serious: Yes (Other)
  Sender: FDA-Public Use
  Company Number: MX-UCBSA-075888

PATIENT
  Age: 31 Year
  Sex: Male
  Weight: 40 kg

DRUGS (3)
  1. KEPPRA [Suspect]
     Indication: EPILEPSY
     Route: 048
     Dates: start: 20110829, end: 2012
  2. CARBAMAZEPINE [Concomitant]
     Indication: EPILEPSY
     Route: 048
     Dates: start: 2006
  3. EPAMIN [Concomitant]
     Indication: EPILEPSY
     Route: 048
     Dates: start: 2006

REACTIONS (1)
  - Convulsion [Recovered/Resolved]
